FAERS Safety Report 4345297-1 (Version None)
Quarter: 2004Q2

REPORT INFORMATION
  Report Type: 
  Country: None (occurrence: None)
  Receive Date: 20040423
  Receipt Date: 20040323
  Transmission Date: 20050107
  Serious: Yes (Disabling, Other)
  Sender: FDA-Public Use
  Company Number: US-GLAXOSMITHKLINE-A0504047A

PATIENT
  Age: 50 Year
  Sex: Male
  Weight: 130.5 kg

DRUGS (1)
  1. ADVAIR DISKUS 100/50 [Suspect]
     Indication: ASTHMA
     Dosage: 1PUFF TWICE PER DAY
     Route: 055
     Dates: start: 20011113, end: 20040319

REACTIONS (2)
  - ASEPTIC NECROSIS BONE [None]
  - GROIN PAIN [None]
